FAERS Safety Report 9962074 (Version 1)
Quarter: 2014Q1

REPORT INFORMATION
  Report Type: Spontaneous
  Country: US (occurrence: None)
  Receive Date: 20140304
  Receipt Date: 20140304
  Transmission Date: 20141002
  Serious: Yes (Hospitalization)
  Sender: FDA-Public Use
  Company Number: None

PATIENT
  Sex: Male

DRUGS (4)
  1. SIMPONI [Suspect]
     Route: 058
     Dates: start: 20130529
  2. METHOTREXATE [Concomitant]
  3. FOLIC ACID [Concomitant]
  4. VITAMIN D [Concomitant]

REACTIONS (1)
  - Myocardial infarction [None]
